FAERS Safety Report 21972665 (Version 2)
Quarter: 2023Q1

REPORT INFORMATION
  Report Type: Spontaneous
  Country: SE (occurrence: SE)
  Receive Date: 20230209
  Receipt Date: 20230214
  Transmission Date: 20230417
  Serious: Yes (Hospitalization)
  Sender: FDA-Public Use
  Company Number: SE-VERTEX PHARMACEUTICALS-2023-001909

PATIENT
  Age: 39 Year
  Sex: Male

DRUGS (1)
  1. ELEXACAFTOR\IVACAFTOR\TEZACAFTOR [Suspect]
     Active Substance: ELEXACAFTOR\IVACAFTOR\TEZACAFTOR
     Indication: Cystic fibrosis
     Dosage: HALF DOSE
     Route: 048

REACTIONS (2)
  - Infection [Recovering/Resolving]
  - Renal impairment [Recovering/Resolving]
